FAERS Safety Report 9028971 (Version 2)
Quarter: 2013Q1

REPORT INFORMATION
  Report Type: Spontaneous
  Country: US (occurrence: US)
  Receive Date: 20130123
  Receipt Date: 20130208
  Transmission Date: 20140127
  Serious: Yes (Other)
  Sender: FDA-Public Use
  Company Number: US-SANOFI-AVENTIS-2013SA002906

PATIENT
  Age: 83 Year
  Sex: Female
  Weight: 99.79 kg

DRUGS (5)
  1. LANTUS [Suspect]
     Indication: TYPE 2 DIABETES MELLITUS
     Dosage: DOSE:50 UNIT(S)
     Route: 051
  2. LANTUS SOLOSTAR [Suspect]
     Indication: TYPE 2 DIABETES MELLITUS
     Dosage: DOSE:50 UNIT(S)
     Route: 051
     Dates: start: 2010
  3. SOLOSTAR [Suspect]
     Indication: TYPE 2 DIABETES MELLITUS
     Dates: start: 2010
  4. GLUCOPHAGE [Concomitant]
  5. HUMALOG [Concomitant]

REACTIONS (9)
  - Glaucoma [Unknown]
  - Cataract [Recovered/Resolved]
  - Visual acuity reduced [Unknown]
  - Arthritis [Unknown]
  - Abasia [Unknown]
  - Pain in extremity [Unknown]
  - Memory impairment [Unknown]
  - Blood glucose abnormal [Recovered/Resolved]
  - Drug ineffective [Unknown]
